FAERS Safety Report 5722558-2 (Version None)
Quarter: 2008Q2

REPORT INFORMATION
  Report Type: 
  Country: None (occurrence: None)
  Receive Date: 20080425
  Receipt Date: 20080410
  Transmission Date: 20081010
  Serious: Yes (Other)
  Sender: FDA-Public Use
  Company Number: TRP_05674_2008

PATIENT
  Sex: Female
  Weight: 58.9676 kg

DRUGS (7)
  1. RIBAVIRIN [Suspect]
     Indication: HEPATITIS C
     Dosage: 1000 MG, ORAL, (400 MG BID, ORAL)
     Route: 048
     Dates: start: 20070401, end: 20071001
  2. RIBAVIRIN [Suspect]
     Indication: HEPATITIS C
     Dosage: 1000 MG, ORAL, (400 MG BID, ORAL)
     Route: 048
     Dates: start: 20071001, end: 20080317
  3. INFERGEN [Suspect]
     Indication: HEPATITIS C VIRUS
     Dosage: 12 UG QD, SUBCUTANEOUS, 9 UG QD, SUBCUTANEOUS, 7.5 UG QD; SUBCUTANEOUS
     Route: 058
     Dates: start: 20070401, end: 20080201
  4. INFERGEN [Suspect]
     Indication: HEPATITIS C VIRUS
     Dosage: 12 UG QD, SUBCUTANEOUS, 9 UG QD, SUBCUTANEOUS, 7.5 UG QD; SUBCUTANEOUS
     Route: 058
     Dates: start: 20080101, end: 20080317
  5. INFERGEN [Suspect]
     Indication: HEPATITIS C VIRUS
     Dosage: 12 UG QD, SUBCUTANEOUS, 9 UG QD, SUBCUTANEOUS, 7.5 UG QD; SUBCUTANEOUS
     Route: 058
     Dates: start: 20080201
  6. DAILY MULTIVITAMIN [Concomitant]
  7. HERBAL PREPARATION [Concomitant]

REACTIONS (6)
  - ANAEMIA [None]
  - BLOOD IRON DECREASED [None]
  - INCORRECT DOSE ADMINISTERED [None]
  - MIGRAINE [None]
  - UNRESPONSIVE TO STIMULI [None]
  - WHITE BLOOD CELL COUNT DECREASED [None]
